FAERS Safety Report 9224768 (Version 1)
Quarter: 2013Q2

REPORT INFORMATION
  Report Type: Spontaneous
  Country: US (occurrence: None)
  Receive Date: 20130409
  Receipt Date: 20130409
  Transmission Date: 20140414
  Serious: Yes (Other)
  Sender: FDA-Public Use
  Company Number: DSU-2013-02446

PATIENT
  Age: 41 Year
  Sex: Female

DRUGS (3)
  1. COLESEVELAM HYDROCHLORIDE [Suspect]
     Indication: HYPERCHOLESTEROLAEMIA
     Route: 048
  2. ROSUVASTATIN [Suspect]
     Indication: HYPERCHOLESTEROLAEMIA
  3. NIACIN [Suspect]
     Indication: HYPERCHOLESTEROLAEMIA

REACTIONS (1)
  - Tendon pain [None]
